FAERS Safety Report 23483688 (Version 2)
Quarter: 2024Q1

REPORT INFORMATION
  Report Type: Spontaneous
  Country: FI (occurrence: FI)
  Receive Date: 20240205
  Receipt Date: 20240322
  Transmission Date: 20240409
  Serious: Yes (Disabling)
  Sender: FDA-Public Use
  Company Number: None

PATIENT
  Age: 23 Year
  Sex: Female

DRUGS (10)
  1. TOPAMAX [Suspect]
     Active Substance: TOPIRAMATE
     Indication: Migraine prophylaxis
     Route: 048
     Dates: start: 20240109, end: 20240117
  2. MIRANAX [NAPROXEN SODIUM] [Concomitant]
     Indication: Endometriosis
     Dosage: 1 TABLET 1-2 X IN A DAY AS NECESSARY/1 TABLETTI 1-2 KERTAA VUOROKAUDESSA TARVITTAESSA.
     Route: 048
     Dates: start: 201808
  3. MIRANAX [NAPROXEN SODIUM] [Concomitant]
     Indication: Dysmenorrhoea
  4. AMITRIPTYLINE HYDROCHLORIDE [Concomitant]
     Active Substance: AMITRIPTYLINE HYDROCHLORIDE
     Indication: Fibromyalgia
     Route: 048
     Dates: start: 201911
  5. IMODIUM [Concomitant]
     Active Substance: LOPERAMIDE HYDROCHLORIDE
     Indication: Irritable bowel syndrome
     Dosage: 1-8 CAPSULES IN A DAY/1-8 KAPSELIA VUOROKAUDESSA.
     Route: 048
     Dates: start: 202009
  6. MELATONIN [Concomitant]
     Active Substance: MELATONIN
     Indication: Initial insomnia
     Dosage: DIFFERENT PRODUCTS AND DOSES SINCE 2012, 5MG IN THE EVENING SINCE 2019/MERKKI JA ANNOS VAIHDELLUT VU
     Route: 048
     Dates: start: 2012
  7. ACETAMINOPHEN [Concomitant]
     Active Substance: ACETAMINOPHEN
     Indication: Pain
     Dosage: 1-2 TABLETS 1-3 X IN A DAY AS NECESSARY/1-2 TABLETTIA 1-3 KERTAA VUOROKAUDESSA TARVITTAESSA.
     Route: 048
     Dates: start: 2016
  8. NORETHINDRONE [Concomitant]
     Active Substance: NORETHINDRONE
     Indication: Endometriosis
     Route: 048
     Dates: start: 202302
  9. KETOPROFEN [Concomitant]
     Active Substance: KETOPROFEN
     Indication: Migraine
     Dosage: 0,5-1 TABLET 1-2 X IN A DAY AS NECESSARY/0,5-1 TABLETTIA TARVITTAESSA 1-2 KERTAA VUOROKAUDESSA.
     Route: 048
     Dates: start: 2020
  10. IBUPROFEN [Concomitant]
     Active Substance: IBUPROFEN
     Indication: Pain
     Dosage: 1-3 TABLETS IN A DAY AS NECESSARY/1-3 TABLETTIA PAIVASSA TARVITTAESSA.
     Route: 048
     Dates: start: 2016

REACTIONS (41)
  - Dizziness [Unknown]
  - Vision blurred [Unknown]
  - Decreased appetite [Unknown]
  - Dizziness [Unknown]
  - Asthenia [Unknown]
  - Confusional state [Unknown]
  - Dyspnoea [Unknown]
  - Memory impairment [Unknown]
  - Visual impairment [Unknown]
  - Fatigue [Unknown]
  - Speech disorder [Unknown]
  - Dry mouth [Unknown]
  - Somnolence [Unknown]
  - Pollakiuria [Unknown]
  - Nausea [Unknown]
  - Cough [Unknown]
  - Influenza like illness [Unknown]
  - Migraine [Unknown]
  - Drug ineffective [Unknown]
  - Anger [Unknown]
  - Decreased immune responsiveness [Unknown]
  - Peripheral coldness [Unknown]
  - Anosmia [Unknown]
  - Nasal congestion [Unknown]
  - Malaise [Unknown]
  - Dysarthria [Unknown]
  - Irritability [Unknown]
  - Impaired reasoning [Unknown]
  - Derealisation [Unknown]
  - Oropharyngeal pain [Unknown]
  - Hypoacusis [Unknown]
  - Pyrexia [Unknown]
  - Feeling of body temperature change [Unknown]
  - Bradyphrenia [Unknown]
  - Balance disorder [Unknown]
  - Tonsillitis streptococcal [Unknown]
  - Stress [Unknown]
  - Clumsiness [Unknown]
  - Disorganised speech [Unknown]
  - Ageusia [Unknown]
  - Chloropsia [Unknown]

NARRATIVE: CASE EVENT DATE: 20240109
